FAERS Safety Report 21302500 (Version 1)
Quarter: 2022Q3

REPORT INFORMATION
  Report Type: Spontaneous
  Country: JP (occurrence: None)
  Receive Date: 20220907
  Receipt Date: 20220907
  Transmission Date: 20221027
  Serious: Yes (Other)
  Sender: FDA-Public Use
  Company Number: 2022A306388

PATIENT

DRUGS (1)
  1. CRESTOR [Suspect]
     Active Substance: ROSUVASTATIN CALCIUM
     Dosage: DOSE UNKNOWN
     Route: 048

REACTIONS (5)
  - Lupus-like syndrome [Unknown]
  - Antinuclear antibody positive [Unknown]
  - Pyrexia [Unknown]
  - Rash [Unknown]
  - Arthralgia [Unknown]
